FAERS Safety Report 10515494 (Version 1)
Quarter: 2014Q3

REPORT INFORMATION
  Report Type: Spontaneous
  Country: US (occurrence: None)
  Receive Date: 20140926
  Receipt Date: 20140926
  Transmission Date: 20150326
  Serious: No
  Sender: FDA-Public Use
  Company Number: 1000070044

PATIENT
  Age: 80 Year
  Sex: Male

DRUGS (6)
  1. ANTACID (NOS) (ANTACID (NOS) ) (ANTACID (NOS) ) [Concomitant]
  2. TOPROL XL (METOPROLOL) (METOPROLOL) [Concomitant]
  3. LINZESS [Suspect]
     Active Substance: LINACLOTIDE
     Dosage: 145 MCG PRN, ORAL
     Route: 048
     Dates: start: 201408
  4. DIOVAN [Concomitant]
     Active Substance: VALSARTAN
  5. LINZESS [Suspect]
     Active Substance: LINACLOTIDE
     Dosage: 290 MCG  (290 MCG, 1 IN 1 D), ORAL
     Route: 048
     Dates: start: 20140804, end: 20140806
  6. ALLEGRA (FEXOFENADINE HYDROCHLORIDE) (FEXOFENADINE HDROCHLORIDE) [Concomitant]

REACTIONS (2)
  - Diarrhoea [None]
  - Abdominal pain [None]

NARRATIVE: CASE EVENT DATE: 201408
